FAERS Safety Report 14171403 (Version 3)
Quarter: 2018Q1

REPORT INFORMATION
  Report Type: Spontaneous
  Country: US (occurrence: US)
  Receive Date: 20171108
  Receipt Date: 20180212
  Transmission Date: 20180508
  Serious: No
  Sender: FDA-Public Use
  Company Number: US-009507513-1711USA002529

PATIENT
  Sex: Female

DRUGS (5)
  1. MENOPUR [Concomitant]
     Active Substance: FOLLITROPIN\LUTEINIZING HORMONE
     Indication: ASSISTED FERTILISATION
  2. REPRONEX [Concomitant]
     Active Substance: FOLLITROPIN\LUTEINIZING HORMONE
     Indication: ASSISTED FERTILISATION
  3. GANIRELIX ACETATE INJECTION [Concomitant]
     Active Substance: GANIRELIX ACETATE
     Indication: ASSISTED FERTILISATION
     Dosage: 0.25 MG DAILY
  4. PREGNYL [Suspect]
     Active Substance: CHORIOGONADOTROPIN ALFA
     Indication: ASSISTED FERTILISATION
     Dosage: UNK
  5. GONAL-F [Concomitant]
     Active Substance: FOLLITROPIN
     Indication: ASSISTED FERTILISATION

REACTIONS (1)
  - Inappropriate schedule of drug administration [Unknown]
